FAERS Safety Report 8291289-X (Version None)
Quarter: 2012Q2

REPORT INFORMATION
  Report Type: 
  Country: None (occurrence: None)
  Receive Date: 20120417
  Receipt Date: 20120402
  Transmission Date: 20120825
  Serious: Yes (Other)
  Sender: FDA-Public Use
  Company Number: CH-WATSON-2012-06545

PATIENT
  Age: 64 Year
  Sex: Male

DRUGS (3)
  1. AZATHIOPRINE [Suspect]
     Indication: HEART TRANSPLANT
     Dosage: 12.5 - 25 MG, DAILY
     Route: 065
  2. EVEROLIMUS [Suspect]
     Indication: HEART TRANSPLANT
     Dosage: 1.5 MG DAILY
  3. CYCLOSPORINE [Suspect]
     Indication: HEART TRANSPLANT
     Dosage: 50 - 200 MG, DAILY
     Route: 065

REACTIONS (2)
  - SQUAMOUS CELL CARCINOMA [None]
  - IMPAIRED HEALING [None]
